FAERS Safety Report 23427884 (Version 1)
Quarter: 2024Q1

REPORT INFORMATION
  Report Type: Spontaneous
  Country: US (occurrence: None)
  Receive Date: 20240121
  Receipt Date: 20240121
  Transmission Date: 20240410
  Serious: Yes (Other)
  Sender: FDA-Public Use
  Company Number: None

PATIENT
  Age: 72 Year
  Sex: Female
  Weight: 90 kg

DRUGS (13)
  1. KETOCONAZOLE [Suspect]
     Active Substance: KETOCONAZOLE
     Indication: Fungal skin infection
     Dosage: OTHER QUANTITY : 120 TABLESPOON(S);?OTHER FREQUENCY : 2XWK;?
     Route: 061
     Dates: start: 20231204, end: 20231231
  2. GABAPENTIN [Concomitant]
     Active Substance: GABAPENTIN
  3. METHOCARBAMOL [Concomitant]
     Active Substance: METHOCARBAMOL
  4. LEVOTHYROXINE [Concomitant]
     Active Substance: LEVOTHYROXINE\LEVOTHYROXINE SODIUM
  5. DEXTROAMPHET SACCHARAT, AMPHET ASPARTATE, DEXTROAMPHET SULFATE AND AMP [Concomitant]
     Active Substance: AMPHETAMINE ASPARTATE\AMPHETAMINE ASPARTATE MONOHYDRATE\AMPHETAMINE SULFATE\DEXTROAMPHETAMINE SACCHA
  6. ZOLPIDEM [Concomitant]
     Active Substance: ZOLPIDEM TARTRATE
  7. IBUPROFEN [Concomitant]
     Active Substance: IBUPROFEN
  8. TYLENOL [Concomitant]
     Active Substance: ACETAMINOPHEN
  9. VIT/MIN COMBO [Concomitant]
  10. MELATONIN [Concomitant]
     Active Substance: MELATONIN
  11. LIFE EXTENSION COLLAGEN BROTH [Concomitant]
  12. SLEEP SUPPLEMENTS [Concomitant]
  13. STEM CELL SUPPLEMENT [Concomitant]

REACTIONS (5)
  - Alopecia [None]
  - Pruritus [None]
  - Scab [None]
  - Dry skin [None]
  - Trichorrhexis [None]

NARRATIVE: CASE EVENT DATE: 20231204
